FAERS Safety Report 15003134 (Version 2)
Quarter: 2018Q2

REPORT INFORMATION
  Report Type: Spontaneous
  Country: DE (occurrence: DE)
  Receive Date: 20180612
  Receipt Date: 20180619
  Transmission Date: 20180711
  Serious: Yes (Hospitalization, Other)
  Sender: FDA-Public Use
  Company Number: DE-TEVA-2018-DE-903891

PATIENT
  Age: 52 Year
  Sex: Female

DRUGS (11)
  1. LAMOTRIGIN [Concomitant]
     Active Substance: LAMOTRIGINE
     Route: 048
  2. ACETYLSALICYLSAEURE [Concomitant]
     Active Substance: ASPIRIN
     Route: 048
  3. URSOFALK [Concomitant]
     Active Substance: URSODIOL
     Route: 048
  4. MYFORTIC [Suspect]
     Active Substance: MYCOPHENOLATE SODIUM
     Route: 048
  5. PREDNISONE. [Suspect]
     Active Substance: PREDNISONE
     Route: 048
  6. TAVANIC 250 [Concomitant]
     Route: 048
  7. PREDNISONE. [Suspect]
     Active Substance: PREDNISONE
     Route: 048
  8. METOPROLOL. [Concomitant]
     Active Substance: METOPROLOL
     Route: 048
  9. PROGRAF [Suspect]
     Active Substance: TACROLIMUS\TACROLIMUS ANHYDROUS
     Route: 048
  10. FOLSAEURE [Concomitant]
     Active Substance: FOLIC ACID
     Route: 048
  11. DEKRISTOL 20000I.E. [Concomitant]
     Route: 048

REACTIONS (8)
  - Chills [Unknown]
  - Vomiting [Unknown]
  - Urinary tract infection [Unknown]
  - Pyrexia [Unknown]
  - Nausea [Unknown]
  - Renal impairment [Unknown]
  - Pollakiuria [Unknown]
  - Diarrhoea [Unknown]
